FAERS Safety Report 8765231 (Version 1)
Quarter: 2012Q4

REPORT INFORMATION
  Report Type: 
  Country: US (occurrence: US)
  Receive Date: 20120902
  Receipt Date: 20120902
  Transmission Date: 20130627
  Serious: No
  Sender: FDA-Public Use
  Company Number: US-PFIZER INC-2012214359

PATIENT
  Age: 88 Year
  Sex: Male
  Weight: 68.03 kg

DRUGS (2)
  1. FLECTOR [Suspect]
     Indication: PAIN
     Dosage: UNK
     Dates: start: 20120806, end: 20120808
  2. PLAVIX [Concomitant]
     Dosage: UNK

REACTIONS (1)
  - Drug ineffective [Unknown]
